FAERS Safety Report 19932015 (Version 1)
Quarter: 2021Q4

REPORT INFORMATION
  Report Type: Spontaneous
  Country: CN (occurrence: CN)
  Receive Date: 20211007
  Receipt Date: 20211007
  Transmission Date: 20220303
  Serious: Yes (Hospitalization, Other)
  Sender: FDA-Public Use
  Company Number: CN-BAXTER-2021BAX026457

PATIENT
  Age: 49 Year
  Sex: Female
  Weight: 59.5 kg

DRUGS (8)
  1. CYCLOPHOSPHAMIDE [Suspect]
     Active Substance: CYCLOPHOSPHAMIDE
     Indication: Breast cancer
     Dosage: CYCLOPHOSPHAMIDE FOR INJECTION 1000 MG+0.9%  SODIUM CHLORIDE (100 ML)
     Route: 041
     Dates: start: 20210507, end: 20210507
  2. CYCLOPHOSPHAMIDE [Suspect]
     Active Substance: CYCLOPHOSPHAMIDE
     Dosage: DOSE RE-INTRODUCED, CYCLOPHOSPHAMIDE FOR INJECTION +0.9%  SODIUM CHLORIDE
     Route: 041
  3. PIRARUBICIN HYDROCHLORIDE [Suspect]
     Active Substance: PIRARUBICIN HYDROCHLORIDE
     Indication: Breast cancer
     Dosage: 0.9% SODIUM CHLORIDE INJECTION 100ML + PIRARUBICIN FOR INJECTION 80 MG
     Route: 041
     Dates: start: 20210507, end: 20210507
  4. PIRARUBICIN HYDROCHLORIDE [Suspect]
     Active Substance: PIRARUBICIN HYDROCHLORIDE
     Dosage: DOSE RE-INTRODUCED, 0.9% SODIUM CHLORIDE INJECTION + PIRARUBICIN FOR INJECTION
     Route: 041
  5. SODIUM CHLORIDE [Suspect]
     Active Substance: SODIUM CHLORIDE
     Indication: Medication dilution
     Dosage: CYCLOPHOSPHAMIDE FOR INJECTION 1000 MG+0.9%  SODIUM CHLORIDE (100 ML)
     Route: 041
     Dates: start: 20210507, end: 20210507
  6. SODIUM CHLORIDE [Suspect]
     Active Substance: SODIUM CHLORIDE
     Dosage: PIRARUBICIN HYDROCHLORIDE (80 MG)+0.9% SODIUM CHLORIDE (100 ML)
     Route: 041
     Dates: start: 20210507, end: 20210507
  7. SODIUM CHLORIDE [Suspect]
     Active Substance: SODIUM CHLORIDE
     Dosage: DOSE RE-INTRODUCED, CYCLOPHOSPHAMIDE FOR INJECTION +0.9%  SODIUM CHLORIDE
     Route: 041
  8. SODIUM CHLORIDE [Suspect]
     Active Substance: SODIUM CHLORIDE
     Dosage: DOSE RE-INTRODUCED, 0.9% SODIUM CHLORIDE INJECTION + PIRARUBICIN FOR INJECTION
     Route: 041

REACTIONS (2)
  - Myelosuppression [Recovering/Resolving]
  - Pharyngitis [Unknown]

NARRATIVE: CASE EVENT DATE: 20210521
